FAERS Safety Report 17072790 (Version 1)
Quarter: 2019Q4

REPORT INFORMATION
  Report Type: Report from Study
  Country: GB (occurrence: GB)
  Receive Date: 20191125
  Receipt Date: 20191125
  Transmission Date: 20200122
  Serious: Yes (Other)
  Sender: FDA-Public Use
  Company Number: GB-JNJFOC-20191130320

PATIENT
  Sex: Male

DRUGS (5)
  1. IBUPROFEN. [Concomitant]
     Active Substance: IBUPROFEN
  2. PARACETAMOL [Concomitant]
     Active Substance: ACETAMINOPHEN
  3. MORPHINE [Concomitant]
     Active Substance: MORPHINE
  4. BUSCOPAN [Concomitant]
     Active Substance: BUTYLSCOPOLAMINE BROMIDE
  5. STELARA [Suspect]
     Active Substance: USTEKINUMAB
     Indication: CROHN^S DISEASE
     Route: 058
     Dates: start: 20190523

REACTIONS (3)
  - Anal fissure [Unknown]
  - Abscess [Unknown]
  - Product dose omission [Unknown]
